FAERS Safety Report 21519245 (Version 1)
Quarter: 2022Q4

REPORT INFORMATION
  Report Type: Spontaneous
  Country: US (occurrence: None)
  Receive Date: 20221027
  Receipt Date: 20221027
  Transmission Date: 20230113
  Serious: No
  Sender: FDA-Public Use
  Company Number: None

PATIENT
  Sex: Male

DRUGS (2)
  1. CARVEDILOL [Suspect]
     Active Substance: CARVEDILOL
     Dosage: 25 MG BID PO
     Route: 048
     Dates: start: 20220902, end: 20220903
  2. METOPROLOL SUCCINATE [Suspect]
     Active Substance: METOPROLOL SUCCINATE
     Dosage: 75 MG EVERY DAY PO
     Route: 048
     Dates: start: 20220902, end: 20220903

REACTIONS (3)
  - Bradycardia [None]
  - Atrioventricular block first degree [None]
  - Atrioventricular block second degree [None]

NARRATIVE: CASE EVENT DATE: 20220903
